FAERS Safety Report 24036462 (Version 1)
Quarter: 2024Q3

REPORT INFORMATION
  Report Type: Spontaneous
  Country: US (occurrence: US)
  Receive Date: 20240701
  Receipt Date: 20240701
  Transmission Date: 20241017
  Serious: Yes (Other)
  Sender: AMGEN
  Company Number: US-AMGEN-USASP2024124567

PATIENT
  Age: 60 Year
  Sex: Male

DRUGS (1)
  1. PREDNISONE [Suspect]
     Active Substance: PREDNISONE
     Indication: Pneumonia
     Dosage: UNK
     Route: 065

REACTIONS (3)
  - Malignant neoplasm of thorax [Unknown]
  - Hypoxia [Not Recovered/Not Resolved]
  - Drug ineffective [Unknown]
